FAERS Safety Report 23626163 (Version 1)
Quarter: 2024Q1

REPORT INFORMATION
  Report Type: Spontaneous
  Country: IT (occurrence: IT)
  Receive Date: 20240313
  Receipt Date: 20240313
  Transmission Date: 20240410
  Serious: Yes (Other)
  Sender: FDA-Public Use
  Company Number: None

PATIENT
  Age: 74 Year
  Sex: Female
  Weight: 80 kg

DRUGS (3)
  1. DOCETAXEL [Suspect]
     Active Substance: DOCETAXEL\DOCETAXEL ANHYDROUS
     Indication: Breast cancer
     Dates: start: 20240209, end: 20240209
  2. TRASTUZUMAB [Concomitant]
     Active Substance: TRASTUZUMAB
  3. PERTUZUMAB [Concomitant]
     Active Substance: PERTUZUMAB

REACTIONS (2)
  - Erythema [Recovered/Resolved]
  - Laryngeal oedema [Recovered/Resolved]

NARRATIVE: CASE EVENT DATE: 20240209
